FAERS Safety Report 24441937 (Version 1)
Quarter: 2024Q4

REPORT INFORMATION
  Report Type: Spontaneous
  Country: US (occurrence: US)
  Receive Date: 20241016
  Receipt Date: 20241016
  Transmission Date: 20250115
  Serious: No
  Sender: ROCHE
  Company Number: US-ROCHE-10000104308

PATIENT
  Sex: Female

DRUGS (1)
  1. ACTEMRA ACTPEN [Suspect]
     Active Substance: TOCILIZUMAB
     Indication: Rheumatoid arthritis
     Dosage: STRENGTH: 162MG/0.9 ML
     Route: 058
     Dates: start: 202409

REACTIONS (6)
  - Headache [Unknown]
  - Abdominal pain upper [Unknown]
  - Lip ulceration [Unknown]
  - Tongue ulceration [Unknown]
  - Fatigue [Unknown]
  - Arthritis [Unknown]
